FAERS Safety Report 24053759 (Version 1)
Quarter: 2024Q3

REPORT INFORMATION
  Report Type: Spontaneous
  Country: AT (occurrence: AT)
  Receive Date: 20240705
  Receipt Date: 20240705
  Transmission Date: 20241017
  Serious: Yes (Hospitalization, Other)
  Sender: GENMAB
  Company Number: AT-GENMAB-2024-02355

PATIENT
  Age: 72 Year
  Sex: Male

DRUGS (3)
  1. EPCORITAMAB [Suspect]
     Active Substance: EPCORITAMAB
     Indication: Diffuse large B-cell lymphoma
     Dosage: USUAL RAMP-UP
     Route: 058
     Dates: start: 202405
  2. KEPPRA [Concomitant]
     Active Substance: LEVETIRACETAM
     Indication: Prophylaxis
     Dosage: UNK
  3. DEXAMETHASONE ACETATE [Concomitant]
     Active Substance: DEXAMETHASONE ACETATE
     Indication: Immune effector cell-associated neurotoxicity syndrome
     Dosage: 10 MG, 2/DAYS

REACTIONS (9)
  - Lacunar stroke [Unknown]
  - Immune effector cell-associated neurotoxicity syndrome [Unknown]
  - Confusional state [Unknown]
  - Immune-mediated neuropathy [Unknown]
  - Tremor [Unknown]
  - Nervous system disorder [Not Recovered/Not Resolved]
  - Joint range of motion decreased [Unknown]
  - Neuroborreliosis [Unknown]
  - JC virus infection [Unknown]
